FAERS Safety Report 8561606-1 (Version None)
Quarter: 2012Q3

REPORT INFORMATION
  Report Type: 
  Country: None (occurrence: None)
  Receive Date: 20120727
  Receipt Date: 20120727
  Transmission Date: 20120928
  Serious: Yes (Hospitalization)
  Sender: FDA-Public Use
  Company Number: None

PATIENT
  Age: 55 Year
  Sex: Male

DRUGS (17)
  1. AMBIEN [Concomitant]
  2. VITAMIN B-12 [Concomitant]
  3. US CONTIN [Concomitant]
  4. ULORIC [Concomitant]
  5. PLAVIX [Suspect]
     Indication: CORONARY ARTERY DISEASE
     Dosage: 75 MG, DAILY, PO
     Route: 048
  6. ASPIRIN [Concomitant]
  7. FOSAMAX [Suspect]
  8. PRAVASTATIN [Concomitant]
  9. ZEMULIN [Concomitant]
  10. PREDNISOLONE [Concomitant]
  11. OT...... [Concomitant]
  12. ASPIRIN [Suspect]
     Indication: CORONARY ARTERY DISEASE
     Dosage: 81 MG, 1.35 MG, DAILY/......
  13. LEFLUNOMIDE [Concomitant]
  14. ........ [Concomitant]
  15. COREY [Concomitant]
  16. ULOVIN [Concomitant]
  17. PLAQUENIL [Concomitant]

REACTIONS (1)
  - ASTHENIA [None]
